FAERS Safety Report 4757753-2 (Version None)
Quarter: 2005Q3

REPORT INFORMATION
  Report Type: 
  Country: None (occurrence: None)
  Receive Date: 20050830
  Receipt Date: 20050822
  Transmission Date: 20060218
  Serious: Yes (Hospitalization)
  Sender: FDA-Public Use
  Company Number: 2005118724

PATIENT
  Age: 57 Year
  Sex: Male
  Weight: 53 kg

DRUGS (11)
  1. ATORVASTATIN CALCIUM [Suspect]
     Indication: ILL-DEFINED DISORDER
     Dosage: 40 MG (1 IN 1 D), ORAL
     Route: 048
     Dates: start: 20050604, end: 20050726
  2. HEPARIN [Suspect]
     Indication: ILL-DEFINED DISORDER
     Dosage: 1.2 ML (2 IN 1 D), SUBCUTANEOUS
     Route: 058
     Dates: start: 20050720, end: 20050725
  3. KARDEGIC (ACETYLSALICYLATE LYSINE) [Suspect]
     Indication: MYOCARDIAL INFARCTION
     Dosage: 75 MG (1 IN 1 D), ORAL
     Route: 048
     Dates: start: 20050604, end: 20050726
  4. PLAVIX [Suspect]
     Indication: MYOCARDIAL INFARCTION
     Dosage: 75 MG (1 IN 1 D), ORAL
     Route: 048
     Dates: start: 20050604, end: 20050726
  5. RAMIPRIL [Concomitant]
  6. BISOPROLOL FUMARATE [Concomitant]
  7. VITAMIN B1 AND B6 (PYRIDOXINE, THIAMINE) [Concomitant]
  8. OMEPRAZOLE [Concomitant]
  9. ZOLOFT [Concomitant]
  10. PREVISCAN (FLUINDIONE) [Concomitant]
  11. INNOHEP [Concomitant]

REACTIONS (5)
  - CREATININE RENAL CLEARANCE DECREASED [None]
  - DEEP VEIN THROMBOSIS [None]
  - DISSEMINATED INTRAVASCULAR COAGULATION [None]
  - PAIN IN EXTREMITY [None]
  - THROMBOPHLEBITIS SUPERFICIAL [None]
